FAERS Safety Report 8123218-3 (Version None)
Quarter: 2012Q1

REPORT INFORMATION
  Report Type: 
  Country: None (occurrence: None)
  Receive Date: 20120208
  Receipt Date: 20120206
  Transmission Date: 20120608
  Serious: Yes (Other)
  Sender: FDA-Public Use
  Company Number: US-AMGEN-USASP2011060439

PATIENT
  Age: 71 Year
  Sex: Female
  Weight: 77.551 kg

DRUGS (1)
  1. PROLIA [Suspect]
     Indication: OSTEOPOROSIS POSTMENOPAUSAL
     Dosage: 60 MG, Q6MO
     Dates: start: 20111116, end: 20111116

REACTIONS (2)
  - BLADDER CANCER [None]
  - HAEMATURIA [None]
